FAERS Safety Report 10149768 (Version 1)
Quarter: 2014Q2

REPORT INFORMATION
  Report Type: Spontaneous
  Country: IT (occurrence: FR)
  Receive Date: 20140502
  Receipt Date: 20140502
  Transmission Date: 20141212
  Serious: Yes (Hospitalization)
  Sender: FDA-Public Use
  Company Number: FR-FRI-1000066935

PATIENT
  Age: 82 Year
  Sex: Female

DRUGS (11)
  1. NEBIVOLOL [Suspect]
     Dosage: 5 MG
     Route: 048
     Dates: end: 201403
  2. NEBIVOLOL [Suspect]
     Dosage: 2.5 MG
     Dates: start: 2014
  3. PHYSIOTENS [Concomitant]
     Dosage: 0.4 MG
     Route: 048
  4. APROVEL [Concomitant]
     Dosage: 300 MG
     Route: 048
  5. ZOCOR [Concomitant]
     Dosage: 20 MG
     Route: 048
  6. LASILIX RETARD [Concomitant]
     Dosage: 60 MG
     Route: 048
  7. KARDEGIC [Concomitant]
     Dosage: 75 MG
     Route: 048
  8. LEVOTHYROX [Concomitant]
     Dosage: 100 MCG
     Route: 048
  9. RISPERDAL [Concomitant]
     Route: 048
  10. UVEDOSE [Concomitant]
     Route: 048
  11. INIPOMP [Concomitant]
     Route: 048

REACTIONS (4)
  - Sinus bradycardia [Recovered/Resolved]
  - Renal failure acute [Unknown]
  - Confusional state [Unknown]
  - Romberg test positive [Unknown]
